FAERS Safety Report 8854585 (Version 3)
Quarter: 2013Q3

REPORT INFORMATION
  Report Type: Report from Study
  Country: JP (occurrence: JP)
  Receive Date: 20121023
  Receipt Date: 20130708
  Transmission Date: 20140515
  Serious: Yes (Death)
  Sender: FDA-Public Use
  Company Number: JP-PFIZER INC-2011028341

PATIENT
  Age: 11 Month
  Sex: Female
  Weight: 7.9 kg

DRUGS (1)
  1. SILDENAFIL CITRATE [Suspect]
     Indication: PERSISTENT FOETAL CIRCULATION
     Dosage: 20 MG/DAY IN DIVIDED 3 DOSE
     Route: 048
     Dates: start: 20110107, end: 20110129

REACTIONS (1)
  - Emphysema [Fatal]
